FAERS Safety Report 6463138-3 (Version None)
Quarter: 2009Q4

REPORT INFORMATION
  Report Type: 
  Country: None (occurrence: None)
  Receive Date: 20091123
  Receipt Date: 20091105
  Transmission Date: 20100525
  Serious: Yes (Hospitalization)
  Sender: FDA-Public Use
  Company Number: KV200900791

PATIENT
  Age: 44 Year
  Sex: Male

DRUGS (25)
  1. MORPHINE SULFATE [Suspect]
     Indication: PAIN MANAGEMENT
  2. PERCOCET [Suspect]
  3. ROXICODONE [Suspect]
  4. OXYCONTIN [Suspect]
  5. TRAMADOL HCL [Concomitant]
  6. GLUCOTROL [Concomitant]
  7. AVANDIA [Concomitant]
  8. NEXIUM [Concomitant]
  9. LOVENOX /0088602/ (HEPARIN-FRACTION, SODIUM SALT) [Concomitant]
  10. NEURONTIN [Concomitant]
  11. AMITRIPTYLINE HYDROCHLORIDE [Concomitant]
  12. REQUIP [Concomitant]
  13. ZYLOPRIM [Concomitant]
  14. ZESTRIL [Concomitant]
  15. LIPITOR [Concomitant]
  16. INDOCIN /00003801/ (INDOMETACIN) [Concomitant]
  17. COREG [Concomitant]
  18. DIAZEPAM [Concomitant]
  19. CYCLOBENZAPRINE [Concomitant]
  20. CIALIS [Concomitant]
  21. METFORMIN HCL [Concomitant]
  22. VARENICLINE (VARENICLINE) [Concomitant]
  23. AMOXICILINA CLAV /01000301/ (AMOXICILLIN, CLAVULANATE POTASSIUM) [Concomitant]
  24. PREVACID [Concomitant]
  25. PIOGLITAZONE HCL [Concomitant]

REACTIONS (14)
  - BACK PAIN [None]
  - CONFUSIONAL STATE [None]
  - DISORIENTATION [None]
  - HYPERKALAEMIA [None]
  - HYPONATRAEMIA [None]
  - LETHARGY [None]
  - MEMORY IMPAIRMENT [None]
  - MENTAL STATUS CHANGES [None]
  - OVERDOSE [None]
  - PEPTIC ULCER [None]
  - RENAL FAILURE ACUTE [None]
  - RHABDOMYOLYSIS [None]
  - THERAPEUTIC RESPONSE DECREASED [None]
  - UNRESPONSIVE TO STIMULI [None]
